FAERS Safety Report 6402423-8 (Version None)
Quarter: 2009Q4

REPORT INFORMATION
  Report Type: 
  Country: None (occurrence: None)
  Receive Date: 20091015
  Receipt Date: 20091008
  Transmission Date: 20100525
  Serious: Yes (Death)
  Sender: FDA-Public Use
  Company Number: CA-ABBOTT-09P-028-0593273-00

PATIENT
  Sex: Male

DRUGS (1)
  1. HUMIRA [Suspect]
     Indication: ANKYLOSING SPONDYLITIS
     Dosage: 20 MG EVERY 2 WEEKS
     Route: 058
     Dates: start: 20090717, end: 20090731

REACTIONS (1)
  - CEREBROVASCULAR ACCIDENT [None]
